FAERS Safety Report 5561274-7 (Version None)
Quarter: 2007Q4

REPORT INFORMATION
  Report Type: 
  Country: None (occurrence: None)
  Receive Date: 20071215
  Receipt Date: 20071025
  Transmission Date: 20080405
  Serious: No
  Sender: FDA-Public Use
  Company Number: US-AMGEN-KDL249646

PATIENT
  Sex: Female

DRUGS (2)
  1. ENBREL [Suspect]
     Indication: JUVENILE ARTHRITIS
     Route: 058
     Dates: start: 20061101
  2. METHOTREXATE [Concomitant]
     Route: 058
     Dates: start: 20060601

REACTIONS (1)
  - ABNORMAL BEHAVIOUR [None]
